FAERS Safety Report 10430960 (Version 2)
Quarter: 2014Q3

REPORT INFORMATION
  Report Type: Spontaneous
  Country: US (occurrence: None)
  Receive Date: 20140902
  Receipt Date: 20140924
  Transmission Date: 20150326
  Serious: Yes (Hospitalization)
  Sender: FDA-Public Use
  Company Number: KAD201408-001001

PATIENT
  Age: 45 Year
  Sex: Male
  Weight: 92 kg

DRUGS (10)
  1. ASPIRIN(ACETYLSALICYLIC ACID)(ACETYLSALICYLIC ACID) [Concomitant]
  2. RIBAVIRIN. [Suspect]
     Active Substance: RIBAVIRIN
     Indication: HEPATITIS C
     Route: 048
     Dates: start: 20140222, end: 20140314
  3. VIGRAN(ERGOCALCIFEROL, ASCORBIC ACID, PYRIDOXINE HYDROCHLORIDE, THIAMINE HYDROCHLORIDE, RETINOL, RIBOFLAVIN, NICOTINAMIDE, CALCIUM PANTOTHENATE)(ERGOCALCIFEROL, ASCORBIC ACID, PYRIDOXINE HYDROCHLORIDE, THIAMINE HYDROCHLORIDE, RETINOL, RIBOFLAVIN, NICOTINAMIDE, CALCIUM PANTOTHENATE) [Concomitant]
  4. GABAPENTIN(GABAPENTIN)(GABAPENTIN) [Concomitant]
  5. PAXIL(PIROXICAM)(PIROXICAM) [Concomitant]
  6. RISPERDAL(RISPERIDONE)(RISPERIDONE) [Concomitant]
  7. SEROQUEL(QUETIAPINE FUMARATE)(QUETIAPINE FUMARATE) [Concomitant]
  8. ABT-530 [Suspect]
     Active Substance: INVESTIGATIONAL PRODUCT
     Indication: HEPATITIS C
     Route: 048
     Dates: start: 20140219, end: 20140221
  9. ABT-333 [Suspect]
     Active Substance: DASABUVIR
     Indication: HEPATITIS C
     Dosage: 250 MG, TWICE DAILY (500 MG, DAILY)
     Route: 048
     Dates: start: 20140222, end: 20140314
  10. ABT-450/RITONAVIR [Suspect]
     Active Substance: RITONAVIR
     Indication: HEPATITIS C
     Route: 048
     Dates: start: 20140222, end: 20140314

REACTIONS (6)
  - Anxiety [None]
  - Insomnia [None]
  - Agitation [None]
  - Stress [None]
  - Mania [None]
  - Suicidal ideation [None]

NARRATIVE: CASE EVENT DATE: 20140315
